FAERS Safety Report 4397239-0 (Version None)
Quarter: 2004Q3

REPORT INFORMATION
  Report Type: 
  Country: None (occurrence: None)
  Receive Date: 20040714
  Receipt Date: 20040623
  Transmission Date: 20050211
  Serious: Yes (Hospitalization)
  Sender: FDA-Public Use
  Company Number: JP-MERCK-0406USA02452

PATIENT
  Age: 73 Year
  Sex: Female

DRUGS (5)
  1. PEPCID [Suspect]
     Indication: GASTRITIS
     Route: 048
     Dates: start: 20040508, end: 20040614
  2. GLYCYRON [Concomitant]
     Route: 048
     Dates: start: 20040511
  3. ISOBIDE [Concomitant]
     Route: 048
     Dates: start: 20040428
  4. PHENYTOIN [Concomitant]
     Route: 048
     Dates: start: 20040428, end: 20040605
  5. DIOVAN [Concomitant]
     Route: 048
     Dates: start: 20040508

REACTIONS (1)
  - HAEMOLYTIC ANAEMIA [None]
